FAERS Safety Report 7070870-X (Version None)
Quarter: 2010Q4

REPORT INFORMATION
  Report Type: 
  Country: None (occurrence: None)
  Receive Date: 20101029
  Receipt Date: 20101014
  Transmission Date: 20110411
  Serious: Yes (Hospitalization)
  Sender: FDA-Public Use
  Company Number: PHHY2010JP39605

PATIENT
  Sex: Male
  Weight: 51 kg

DRUGS (11)
  1. ALISKIREN/AMOLODIPINE BESYLATE/HYDROCHLOROTHIAZIDE [Suspect]
     Dosage: 150 MG, UNK
     Route: 048
     Dates: start: 20091203, end: 20091214
  2. MICARDIS [Concomitant]
     Indication: HYPERTENSION
     Dosage: 80 MG, UNK
     Route: 048
     Dates: start: 20090508, end: 20091214
  3. ATELEC [Concomitant]
     Indication: HYPERTENSION
     Dosage: 20 MG, UNK
     Route: 048
     Dates: start: 20090722, end: 20091214
  4. EPLERENONE [Concomitant]
     Indication: HYPERTENSION
     Dosage: 50 MG, UNK
     Route: 048
     Dates: start: 20090608, end: 20091214
  5. LOXOPROFEN SODIUM [Concomitant]
     Dosage: 120 MG, UNK
     Route: 048
     Dates: start: 20091001, end: 20091214
  6. EPEL [Concomitant]
     Dosage: 100 MG, UNK
     Route: 048
     Dates: start: 20030802, end: 20091214
  7. THIATON [Concomitant]
     Dosage: 20 MG, UNK
     Route: 048
     Dates: start: 20070908, end: 20091214
  8. PIOGLITAZONE HCL [Concomitant]
     Dosage: 30 MG, UNK
     Route: 048
     Dates: start: 20090722, end: 20091214
  9. LOXOPROFEN [Concomitant]
     Dosage: 120 MG, UNK
     Route: 048
     Dates: start: 20091001, end: 20091214
  10. ACTOS [Concomitant]
     Dosage: 30 MG, UNK
     Route: 048
     Dates: start: 20090722, end: 20091214
  11. NINJIN-TO [Concomitant]
     Dosage: 5.0 G, UNK
     Dates: start: 20070908, end: 20091214

REACTIONS (3)
  - FALL [None]
  - FEMUR FRACTURE [None]
  - SPINAL FRACTURE [None]
